FAERS Safety Report 16539542 (Version 1)
Quarter: 2019Q3

REPORT INFORMATION
  Report Type: Spontaneous
  Country: US (occurrence: US)
  Receive Date: 20190705
  Receipt Date: 20190705
  Transmission Date: 20191004
  Serious: Yes (Other)
  Sender: FDA-Public Use
  Company Number: None

PATIENT
  Age: 32 Year
  Sex: Female
  Weight: 94.5 kg

DRUGS (1)
  1. AJOVY [Suspect]
     Active Substance: FREMANEZUMAB-VFRM
     Indication: MIGRAINE
     Dosage: ?          QUANTITY:1 INJECTION(S);OTHER FREQUENCY:ONCE A MONTH;OTHER ROUTE:INJECTED INTO FATTY TISSUE?
     Dates: start: 20190301, end: 20190705

REACTIONS (8)
  - Injection site swelling [None]
  - Abdominal pain [None]
  - Injection site pruritus [None]
  - Injection site pain [None]
  - Diarrhoea [None]
  - Injection site reaction [None]
  - Injection site erythema [None]
  - Peripheral swelling [None]

NARRATIVE: CASE EVENT DATE: 20190702
